FAERS Safety Report 6494609-1 (Version None)
Quarter: 2009Q4

REPORT INFORMATION
  Report Type: 
  Country: None (occurrence: None)
  Receive Date: 20091214
  Receipt Date: 20090309
  Transmission Date: 20100525
  Serious: No
  Sender: FDA-Public Use
  Company Number: US-BRISTOL-MYERS SQUIBB COMPANY-14536122

PATIENT
  Sex: Male

DRUGS (3)
  1. ABILIFY [Suspect]
     Indication: MAJOR DEPRESSION
     Dosage: DURATION-FOR CLOSE TO A YEAR
  2. ANTIDEPRESSANT [Concomitant]
  3. ANTIDIABETIC PRODUCT [Concomitant]

REACTIONS (1)
  - HYPERGLYCAEMIA [None]
